FAERS Safety Report 7670163-3 (Version None)
Quarter: 2011Q3

REPORT INFORMATION
  Report Type: 
  Country: None (occurrence: None)
  Receive Date: 20110808
  Receipt Date: 20110729
  Transmission Date: 20111222
  Serious: Yes (Other)
  Sender: FDA-Public Use
  Company Number: US-ASTRAZENECA-2005UW14040

PATIENT
  Age: 66 Year
  Sex: Female
  Weight: 88.5 kg

DRUGS (6)
  1. NEXIUM [Suspect]
     Route: 048
  2. DEPAKOTE [Concomitant]
  3. ANTIHYPERTENSIVE [Concomitant]
  4. PRILOSEC OTC [Suspect]
     Route: 048
  5. SEROQUEL [Suspect]
     Indication: BIPOLAR DISORDER
     Route: 048
     Dates: start: 20050920, end: 20050920
  6. DIOVAN [Concomitant]

REACTIONS (12)
  - ANOSMIA [None]
  - RETCHING [None]
  - NAUSEA [None]
  - GASTROOESOPHAGEAL REFLUX DISEASE [None]
  - SOMNOLENCE [None]
  - DYSPNOEA [None]
  - TREATMENT NONCOMPLIANCE [None]
  - VOMITING [None]
  - COUGH [None]
  - DRUG DOSE OMISSION [None]
  - SLEEP DISORDER DUE TO A GENERAL MEDICAL CONDITION [None]
  - HIATUS HERNIA [None]
